FAERS Safety Report 15004981 (Version 1)
Quarter: 2018Q2

REPORT INFORMATION
  Report Type: Spontaneous
  Country: US (occurrence: US)
  Receive Date: 20180613
  Receipt Date: 20180613
  Transmission Date: 20180711
  Serious: No
  Sender: FDA-Public Use
  Company Number: US-COVIS PHARMA B.V.-2017COV01577

PATIENT
  Age: 67 Year
  Sex: Female

DRUGS (13)
  1. METFORMIN [Concomitant]
     Active Substance: METFORMIN HYDROCHLORIDE
  2. FOLIC ACID. [Concomitant]
     Active Substance: FOLIC ACID
  3. CALCIUM [Concomitant]
     Active Substance: CALCIUM
  4. HUMIRA [Concomitant]
     Active Substance: ADALIMUMAB
  5. OMEPRAZOLE MAGNESIUM. [Suspect]
     Active Substance: OMEPRAZOLE MAGNESIUM
     Route: 048
  6. METOPROLOL SUCCINATE. [Suspect]
     Active Substance: METOPROLOL SUCCINATE
     Route: 048
  7. CELEBREX [Concomitant]
     Active Substance: CELECOXIB
  8. IRON [Concomitant]
     Active Substance: IRON
  9. XELJANZ [Suspect]
     Active Substance: TOFACITINIB CITRATE
     Indication: RHEUMATOID ARTHRITIS
     Dosage: 5 MG, 2X/DAY
     Dates: start: 201709
  10. METHOTREXATE. [Concomitant]
     Active Substance: METHOTREXATE
  11. ESTROPIPATE. [Concomitant]
     Active Substance: ESTROPIPATE
  12. PREDNISONE. [Concomitant]
     Active Substance: PREDNISONE
     Dosage: 4 MG, 1X/DAY
  13. METOPROLOL TARTRATE. [Concomitant]
     Active Substance: METOPROLOL TARTRATE

REACTIONS (5)
  - Heart rate increased [Not Recovered/Not Resolved]
  - Pain [Recovered/Resolved]
  - Dysphonia [Unknown]
  - Blood pressure increased [Not Recovered/Not Resolved]
  - Rhinorrhoea [Unknown]
